FAERS Safety Report 9580356 (Version 1)
Quarter: 2013Q4

REPORT INFORMATION
  Report Type: Report from Study
  Country: JP (occurrence: JP)
  Receive Date: 20131002
  Receipt Date: 20131002
  Transmission Date: 20140711
  Serious: Yes (Other)
  Sender: FDA-Public Use
  Company Number: JP-ROCHE-1282739

PATIENT
  Age: 52 Year
  Sex: Male

DRUGS (4)
  1. FLUNITRAZEPAM [Suspect]
     Indication: MENTAL DISORDER
     Route: 065
  2. BROMAZEPAM [Suspect]
     Indication: MENTAL DISORDER
     Route: 065
  3. DIAZEPAM [Suspect]
     Indication: MENTAL DISORDER
     Route: 065
  4. NIMETAZEPAM [Suspect]
     Indication: MENTAL DISORDER
     Route: 065

REACTIONS (2)
  - Altered state of consciousness [Unknown]
  - Overdose [Unknown]
